FAERS Safety Report 12665502 (Version 5)
Quarter: 2017Q1

REPORT INFORMATION
  Report Type: Report from Study
  Country: US (occurrence: US)
  Receive Date: 20160818
  Receipt Date: 20170127
  Transmission Date: 20170428
  Serious: Yes (Death, Hospitalization, Other)
  Sender: FDA-Public Use
  Company Number: US-ACTELION-A-US2016-140714

PATIENT
  Age: 83 Year
  Sex: Female

DRUGS (12)
  1. NEURONTIN [Concomitant]
     Active Substance: GABAPENTIN
  2. FOLIC ACID. [Concomitant]
     Active Substance: FOLIC ACID
  3. ATORVASTATIN [Concomitant]
     Active Substance: ATORVASTATIN
  4. MYSOLINE [Concomitant]
     Active Substance: PRIMIDONE
  5. DULERA [Concomitant]
     Active Substance: FORMOTEROL FUMARATE DIHYDRATE\MOMETASONE FUROATE
  6. UPTRAVI [Suspect]
     Active Substance: SELEXIPAG
     Indication: PULMONARY HYPERTENSION
     Dosage: 600 MCG, BID
     Route: 048
     Dates: start: 20160313, end: 20170119
  7. KLOR-CON [Concomitant]
     Active Substance: POTASSIUM CHLORIDE
  8. FERROUS SULFATE. [Concomitant]
     Active Substance: FERROUS SULFATE
  9. SPIRONOLACTONE. [Concomitant]
     Active Substance: SPIRONOLACTONE
  10. SILDENAFIL. [Concomitant]
     Active Substance: SILDENAFIL
  11. ASPIRIN. [Concomitant]
     Active Substance: ASPIRIN
  12. TORSEMIDE. [Concomitant]
     Active Substance: TORSEMIDE

REACTIONS (7)
  - Hip fracture [Unknown]
  - Chest pain [Unknown]
  - Pneumonia [Fatal]
  - General physical health deterioration [Fatal]
  - Nasopharyngitis [Recovering/Resolving]
  - Fluid retention [Unknown]
  - Urinary tract infection [Unknown]

NARRATIVE: CASE EVENT DATE: 20161013
